FAERS Safety Report 4349844-5 (Version None)
Quarter: 2004Q2

REPORT INFORMATION
  Report Type: 
  Country: None (occurrence: None)
  Receive Date: 20040426
  Receipt Date: 20040426
  Transmission Date: 20050107
  Serious: No
  Sender: FDA-Public Use
  Company Number: 04H-062-0257398-00

PATIENT

DRUGS (3)
  1. LEUCOVORIN CALCIUM [Suspect]
     Indication: CHEMOTHERAPY
     Dosage: 300 MG/M2, ONCE, INTRAVENOUS BOLUS
     Route: 040
  2. ETOPOSIDE [Concomitant]
  3. FLUOROURACIL [Concomitant]

REACTIONS (2)
  - DRUG TOXICITY [None]
  - VOMITING [None]
